FAERS Safety Report 22069878 (Version 1)
Quarter: 2023Q1

REPORT INFORMATION
  Report Type: Report from Study
  Country: US (occurrence: US)
  Receive Date: 20230307
  Receipt Date: 20230307
  Transmission Date: 20230417
  Serious: Yes (Death)
  Sender: FDA-Public Use
  Company Number: US-MYLANLABS-2023M1024271

PATIENT
  Age: 24 Year
  Sex: Female

DRUGS (6)
  1. ACETAMINOPHEN [Suspect]
     Active Substance: ACETAMINOPHEN
     Indication: Product used for unknown indication
     Dosage: UNK
     Route: 065
  2. FOMEPIZOLE [Suspect]
     Active Substance: FOMEPIZOLE
     Indication: Toxicity to various agents
     Dosage: UNK
     Route: 065
  3. EPINEPHRINE [Suspect]
     Active Substance: EPINEPHRINE
     Indication: Toxicity to various agents
     Dosage: UNK
     Route: 065
  4. NOREPINEPHRINE [Suspect]
     Active Substance: NOREPINEPHRINE
     Indication: Toxicity to various agents
     Dosage: UNK
     Route: 065
  5. ACETYLCYSTEINE [Suspect]
     Active Substance: ACETYLCYSTEINE
     Indication: Toxicity to various agents
     Dosage: UNK
     Route: 065
  6. DOPAMINE [Suspect]
     Active Substance: DOPAMINE HYDROCHLORIDE
     Indication: Toxicity to various agents
     Dosage: UNK
     Route: 065

REACTIONS (14)
  - Toxicity to various agents [Fatal]
  - Hypotension [Fatal]
  - Tachycardia [Fatal]
  - Bradycardia [Fatal]
  - Ventricular arrhythmia [Fatal]
  - Respiratory depression [Fatal]
  - Coma [Fatal]
  - Metabolic acidosis [Fatal]
  - Anion gap increased [Fatal]
  - Gastrointestinal haemorrhage [Fatal]
  - Haemolysis [Fatal]
  - Coagulopathy [Fatal]
  - Leukocytosis [Fatal]
  - Drug ineffective [Fatal]
